FAERS Safety Report 8169089-0 (Version None)
Quarter: 2012Q1

REPORT INFORMATION
  Report Type: 
  Country: None (occurrence: None)
  Receive Date: 20120227
  Receipt Date: 20120220
  Transmission Date: 20120608
  Serious: Yes (Hospitalization, Other)
  Sender: FDA-Public Use
  Company Number: US-AMGEN-USASP2010001312

PATIENT
  Age: 49 Year
  Sex: Male
  Weight: 88.435 kg

DRUGS (7)
  1. METHOTREXATE [Concomitant]
     Indication: FLATULENCE
     Dosage: UNK
  2. ENBREL [Suspect]
     Dosage: 25 MG, 2 TIMES/WK
     Dates: start: 20020101, end: 20030101
  3. FOLIC ACID [Concomitant]
     Dosage: UNK
  4. IBUPROFEN [Concomitant]
     Dosage: UNK
  5. PREDNISONE [Concomitant]
     Dosage: UNK
  6. PEPCID [Concomitant]
     Dosage: UNK
  7. ENBREL [Suspect]
     Indication: RHEUMATOID ARTHRITIS
     Dosage: 50 MG, QWK
     Dates: start: 20110315

REACTIONS (10)
  - FLATULENCE [None]
  - CARTILAGE INJURY [None]
  - ARTHRALGIA [None]
  - DIARRHOEA [None]
  - GASTROINTESTINAL DISORDER [None]
  - PANIC ATTACK [None]
  - PULMONARY SARCOIDOSIS [None]
  - FATIGUE [None]
  - DEHYDRATION [None]
  - NEPHROLITHIASIS [None]
